FAERS Safety Report 6787524-7 (Version None)
Quarter: 2010Q2

REPORT INFORMATION
  Report Type: 
  Country: None (occurrence: None)
  Receive Date: 20100623
  Receipt Date: 20071222
  Transmission Date: 20101027
  Serious: No
  Sender: FDA-Public Use
  Company Number: US-PFIZER INC-2007012607

PATIENT
  Sex: Female

DRUGS (4)
  1. SUTENT [Suspect]
     Indication: RENAL CELL CARCINOMA
     Dates: start: 20061113
  2. VERAPAMIL [Concomitant]
  3. ENALAPRIL MALEATE [Concomitant]
  4. LASIX [Concomitant]

REACTIONS (2)
  - HYPOALBUMINAEMIA [None]
  - PROTEIN TOTAL DECREASED [None]
